FAERS Safety Report 20592502 (Version 1)
Quarter: 2022Q1

REPORT INFORMATION
  Report Type: Spontaneous
  Country: US (occurrence: US)
  Receive Date: 20220314
  Receipt Date: 20220314
  Transmission Date: 20220423
  Serious: Yes (Death, Other)
  Sender: FDA-Public Use
  Company Number: US-AMGEN-USASP2022043894

PATIENT
  Age: 79 Year
  Sex: Female

DRUGS (11)
  1. OTEZLA [Suspect]
     Active Substance: APREMILAST
     Indication: Psoriasis
     Dosage: 30 MILLIGRAM, BID
     Route: 048
  2. ROSUVASTATIN [Concomitant]
     Active Substance: ROSUVASTATIN
     Dosage: 20 MILLIGRAM
  3. DONEPEZIL [Concomitant]
     Active Substance: DONEPEZIL
     Dosage: 10 AND 5 MILLIGRAM UNK
  4. LOSARTAN [Concomitant]
     Active Substance: LOSARTAN
     Dosage: 50 MILLIGRAM
  5. BETAMETHASONE [Concomitant]
     Active Substance: BETAMETHASONE
  6. FUROSEMIDE [Concomitant]
     Active Substance: FUROSEMIDE
     Dosage: 40 MILLIGRAM
  7. MEMANTINE [Concomitant]
     Active Substance: MEMANTINE
     Dosage: 28 MILLIGRAM
  8. FOLIC ACID [Concomitant]
     Active Substance: FOLIC ACID
     Dosage: 1 MILLIGRAM
  9. RISPERIDONE [Concomitant]
     Active Substance: RISPERIDONE
     Dosage: 11 MILLIGRAM
  10. LEVOTHYROXINE [Concomitant]
     Active Substance: LEVOTHYROXINE
     Dosage: 0.100 MILLIGRAM
  11. TRADJENTA [Concomitant]
     Active Substance: LINAGLIPTIN
     Dosage: 5 MILLIGRAM

REACTIONS (1)
  - Death [Fatal]

NARRATIVE: CASE EVENT DATE: 20220310
